FAERS Safety Report 5235438-6 (Version None)
Quarter: 2007Q1

REPORT INFORMATION
  Report Type: 
  Country: None (occurrence: None)
  Receive Date: 20070212
  Receipt Date: 20070202
  Transmission Date: 20070707
  Serious: Yes (Other)
  Sender: FDA-Public Use
  Company Number: 2006UW28081

PATIENT
  Age: 68 Year
  Sex: Female
  Weight: 65.8 kg

DRUGS (2)
  1. NOLVADEX [Suspect]
     Indication: BREAST CANCER FEMALE
     Route: 048
     Dates: start: 19850101, end: 20061101
  2. ATENOLOL [Concomitant]

REACTIONS (2)
  - CERVIX CARCINOMA [None]
  - ENDOMETRIAL CANCER [None]
